FAERS Safety Report 13841437 (Version 1)
Quarter: 2017Q3

REPORT INFORMATION
  Report Type: Spontaneous
  Country: US (occurrence: US)
  Receive Date: 20170807
  Receipt Date: 20170807
  Transmission Date: 20171127
  Serious: No
  Sender: FDA-Public Use
  Company Number: US-HIKMA PHARMACEUTICALS CO. LTD-2017US007898

PATIENT

DRUGS (5)
  1. INFLECTRA [Suspect]
     Active Substance: INFLIXIMAB-DYYB
     Dosage: 300 MG/250ML PER WEIGHT INFUSED EVERY 8 WEEKS, UNK
     Route: 065
  2. INFLECTRA [Suspect]
     Active Substance: INFLIXIMAB-DYYB
     Dosage: 300 MG/250ML PER WEIGHT INFUSED EVERY 8 WEEKS, UNK
     Route: 065
  3. INFLECTRA [Suspect]
     Active Substance: INFLIXIMAB-DYYB
     Indication: COLITIS ULCERATIVE
     Dosage: 300 MG/250ML PER WEIGHT INFUSED EVERY 8 WEEKS, UNK
     Route: 065
  4. INFLECTRA [Suspect]
     Active Substance: INFLIXIMAB-DYYB
     Dosage: 300 MG/250ML PER WEIGHT INFUSED EVERY 8 WEEKS, UNK
     Route: 065
  5. INFLECTRA [Suspect]
     Active Substance: INFLIXIMAB-DYYB
     Dosage: 300 MG/250ML PER WEIGHT INFUSED EVERY 8 WEEKS, UNK
     Route: 065

REACTIONS (1)
  - Drug dose omission [Unknown]
